FAERS Safety Report 9748855 (Version 2)
Quarter: 2013Q4

REPORT INFORMATION
  Report Type: Spontaneous
  Country: US (occurrence: US)
  Receive Date: 20131212
  Receipt Date: 20131212
  Transmission Date: 20140711
  Serious: No
  Sender: FDA-Public Use
  Company Number: US-INCYTE CORPORATION-2013IN001682

PATIENT
  Age: 71 Year
  Sex: Male
  Weight: 64.85 kg

DRUGS (9)
  1. JAKAFI [Suspect]
     Indication: MYELOFIBROSIS
     Dosage: 15 MG, BID
     Route: 048
     Dates: start: 20130426, end: 2013
  2. AMIODARONE [Concomitant]
  3. FUROSEMIDE [Concomitant]
  4. AMLODIPINE [Concomitant]
  5. ENALAPRIL [Concomitant]
  6. HYDRALAZINE [Concomitant]
  7. AMBIEN [Concomitant]
  8. ALLOPURINOL [Concomitant]
  9. DILANTIN [Concomitant]

REACTIONS (1)
  - Diarrhoea [Recovered/Resolved]
